FAERS Safety Report 8378436-6 (Version None)
Quarter: 2012Q2

REPORT INFORMATION
  Report Type: 
  Country: None (occurrence: None)
  Receive Date: 20120522
  Receipt Date: 20120118
  Transmission Date: 20120825
  Serious: No
  Sender: FDA-Public Use
  Company Number: US-ASTRAZENECA-2012SE01502

PATIENT
  Age: 45 Year
  Sex: Female

DRUGS (2)
  1. PRILOSEC [Suspect]
     Indication: GASTROOESOPHAGEAL REFLUX DISEASE
     Route: 048
  2. NEXIUM [Suspect]
     Route: 048

REACTIONS (7)
  - PAIN [None]
  - EATING DISORDER [None]
  - ABDOMINAL PAIN UPPER [None]
  - DYSPEPSIA [None]
  - WEIGHT DECREASED [None]
  - MALAISE [None]
  - DRUG INEFFECTIVE [None]
